FAERS Safety Report 23452642 (Version 1)
Quarter: 2024Q1

REPORT INFORMATION
  Report Type: Report from Study
  Country: CA (occurrence: CA)
  Receive Date: 20240129
  Receipt Date: 20240129
  Transmission Date: 20240409
  Serious: Yes (Hospitalization)
  Sender: FDA-Public Use
  Company Number: CA-DRL-USA-CLI/CAN/23/0032642

PATIENT
  Age: 82 Year
  Sex: Female

DRUGS (2)
  1. ZOLEDRONIC ACID [Suspect]
     Active Substance: ZOLEDRONIC ACID
     Indication: Osteoporosis
     Dosage: 5 MG(BASE)/100 ML (0.05 MG(BASE)/ML), YEARLY
     Dates: start: 20210629
  2. ZOLEDRONIC ACID [Suspect]
     Active Substance: ZOLEDRONIC ACID
     Dosage: 5 MG(BASE)/100 ML (0.05 MG(BASE)/ML), YEARLY
     Dates: start: 20220531

REACTIONS (3)
  - Anaemia [Unknown]
  - Fall [Unknown]
  - Asthenia [Unknown]
